FAERS Safety Report 24861006 (Version 1)
Quarter: 2025Q1

REPORT INFORMATION
  Report Type: Spontaneous
  Country: US (occurrence: US)
  Receive Date: 20250120
  Receipt Date: 20250120
  Transmission Date: 20250408
  Serious: No
  Sender: CURRAX PHARMACEUTICALS
  Company Number: US-CURRAX PHARMACEUTICALS-2021-014587

PATIENT
  Sex: Female

DRUGS (1)
  1. CONTRAVE [Suspect]
     Active Substance: BUPROPION HYDROCHLORIDE\NALTREXONE HYDROCHLORIDE
     Indication: Decreased appetite
     Route: 048

REACTIONS (7)
  - Unevaluable event [Unknown]
  - Chest pain [Unknown]
  - Heart rate increased [Unknown]
  - Headache [Unknown]
  - Insomnia [Unknown]
  - Dizziness [Unknown]
  - Fatigue [Unknown]
